FAERS Safety Report 20779480 (Version 2)
Quarter: 2022Q3

REPORT INFORMATION
  Report Type: Spontaneous
  Country: ES (occurrence: ES)
  Receive Date: 20220503
  Receipt Date: 20220727
  Transmission Date: 20221026
  Serious: Yes (Other)
  Sender: FDA-Public Use
  Company Number: ES-PENSA-202201064

PATIENT
  Age: 30 Year
  Sex: Male

DRUGS (5)
  1. LEVOFLOXACIN [Suspect]
     Active Substance: LEVOFLOXACIN
     Indication: Respiratory tract infection
     Dosage: 500 MILLIGRAM, QD (1X PER DAY, 1 DOSAGE FORM QD)
     Route: 048
  2. IBUPROFEN [Suspect]
     Active Substance: IBUPROFEN
     Indication: Respiratory tract infection
     Dosage: 400 MILLIGRAM, PRN (UNK, AS NEEDED)
     Route: 065
  3. ACETAMINOPHEN [Concomitant]
     Active Substance: ACETAMINOPHEN
     Indication: Pyrexia
     Dosage: 3 DOSAGE FORM, QD (3 TABLETS A DAY IF FEVER)
     Route: 048
  4. ACETAMINOPHEN [Concomitant]
     Active Substance: ACETAMINOPHEN
     Indication: Pain
     Dosage: 3 GRAM, QD (1 G, 3X PER DAY AS NEEDED)
     Route: 048
  5. LACTOBACILLUS RHAMNOSUS [Concomitant]
     Active Substance: LACTOBACILLUS RHAMNOSUS
     Indication: Probiotic therapy
     Dosage: 1 DOSAGE FORM, QD
     Route: 048

REACTIONS (12)
  - Feeling abnormal [Unknown]
  - Inflammation [Unknown]
  - Joint stiffness [Unknown]
  - Eye irritation [Unknown]
  - Pain [Unknown]
  - Mental fatigue [Unknown]
  - Fatigue [Unknown]
  - Dizziness [Unknown]
  - Swelling face [Unknown]
  - Confusional state [Unknown]
  - Drug ineffective [Unknown]
  - Off label use [Unknown]
